FAERS Safety Report 8106992-1 (Version None)
Quarter: 2012Q1

REPORT INFORMATION
  Report Type: 
  Country: None (occurrence: None)
  Receive Date: 20120202
  Receipt Date: 20120202
  Transmission Date: 20120608
  Serious: Yes (Other)
  Sender: FDA-Public Use
  Company Number: None

PATIENT
  Age: 55 Year
  Sex: Male
  Weight: 77.11 kg

DRUGS (2)
  1. OXYCODONE HCL AND ACETAMINOPHEN [Suspect]
     Indication: PAIN
     Dates: start: 20080101, end: 20120201
  2. ORAMORPH SR [Concomitant]
     Dates: start: 20090101, end: 20090701

REACTIONS (3)
  - DRUG EFFECT DECREASED [None]
  - ABDOMINAL PAIN UPPER [None]
  - ABDOMINAL PAIN [None]
